FAERS Safety Report 7715540-7 (Version None)
Quarter: 2011Q3

REPORT INFORMATION
  Report Type: 
  Country: None (occurrence: None)
  Receive Date: 20110810
  Receipt Date: 20110330
  Transmission Date: 20111222
  Serious: Yes (Other)
  Sender: FDA-Public Use
  Company Number: 2011AT000116

PATIENT
  Age: 57 Year
  Sex: Male

DRUGS (6)
  1. CIALIS [Suspect]
  2. ROSUVASTATIN [Concomitant]
  3. EDEX [Suspect]
     Indication: ERECTILE DYSFUNCTION
     Dosage: 10 UG;ICAN 4 UG;ICAN
  4. LISINOPRIL [Concomitant]
  5. HYDROCHLOROTHIAZIDE [Concomitant]
  6. TRIMIX [Suspect]

REACTIONS (3)
  - PAINFUL ERECTION [None]
  - FATIGUE [None]
  - PRIAPISM [None]
